FAERS Safety Report 11458197 (Version 10)
Quarter: 2016Q3

REPORT INFORMATION
  Report Type: Spontaneous
  Country: US (occurrence: US)
  Receive Date: 20150904
  Receipt Date: 20160729
  Transmission Date: 20161109
  Serious: Yes (Hospitalization, Other)
  Sender: FDA-Public Use
  Company Number: US-PFIZER INC-2015293138

PATIENT
  Age: 47 Year
  Sex: Female
  Weight: 68 kg

DRUGS (101)
  1. LETAIRIS [Suspect]
     Active Substance: AMBRISENTAN
     Indication: DRUG ABUSE
     Dosage: 10 MG, DAILY
     Route: 048
     Dates: start: 20110208
  2. LETAIRIS [Suspect]
     Active Substance: AMBRISENTAN
     Dosage: 5 MG, DAILY
     Dates: start: 20110209
  3. ORENITRAM [Interacting]
     Active Substance: TREPROSTINIL
     Indication: PULMONARY ARTERIAL HYPERTENSION
     Dosage: 10 MG, 3X/DAY
     Route: 048
  4. UPTRAVI [Suspect]
     Active Substance: SELEXIPAG
     Dosage: 1400 UNK, 2X/DAY
  5. LEVOTHYROXINE. [Concomitant]
     Active Substance: LEVOTHYROXINE
     Indication: HYPOTHYROIDISM
     Dosage: 100 UG, 1X/DAY
     Route: 048
     Dates: start: 2012
  6. AMITRIPTYLINE [Concomitant]
     Active Substance: AMITRIPTYLINE
     Indication: HEADACHE
     Dosage: 100 MG, DAILY, (2 TABLETS IN MORNING THREE TABLETS IN EVENING)
     Route: 048
     Dates: start: 201306
  7. IRON [Concomitant]
     Active Substance: IRON
     Dosage: 225 MG, 2X/DAY
  8. PREDNISONE. [Concomitant]
     Active Substance: PREDNISONE
     Dosage: UNK
     Dates: start: 201509
  9. MELOXICAM. [Concomitant]
     Active Substance: MELOXICAM
     Dosage: 7.5 MG, DAILY
     Route: 048
     Dates: end: 201509
  10. DIPHENHYDRAMINE. [Concomitant]
     Active Substance: DIPHENHYDRAMINE
     Dosage: 25 MG, 2X/DAY (BED TIME)
     Route: 048
  11. CYANOCOBALAMIN. [Concomitant]
     Active Substance: CYANOCOBALAMIN
     Dosage: UNK
  12. BIOTIN [Concomitant]
     Active Substance: BIOTIN
     Dosage: 5000 UG, 1X/DAY
     Route: 048
  13. ELAVIL [Concomitant]
     Active Substance: AMITRIPTYLINE HYDROCHLORIDE
     Dosage: 10 MG, 1X/DAY (3 TABLETS AT NIGHT)
     Route: 048
  14. REVATIO [Suspect]
     Active Substance: SILDENAFIL CITRATE
     Indication: PULMONARY HYPERTENSION
     Dosage: 180 MG, 3X/DAY [20MG 9 TABLETS (180MG)]
     Route: 048
  15. LETAIRIS [Suspect]
     Active Substance: AMBRISENTAN
     Dosage: 10 MG, 1X/DAY
  16. LETAIRIS [Suspect]
     Active Substance: AMBRISENTAN
     Dosage: UNK
  17. ACETYLSALICYLIC ACID [Suspect]
     Active Substance: ASPIRIN
     Dosage: UNK
     Dates: start: 20160301
  18. LASIX [Concomitant]
     Active Substance: FUROSEMIDE
     Indication: LEFT VENTRICULAR FAILURE
     Dosage: 20 MG, 3X/DAY
     Route: 048
     Dates: end: 201206
  19. CELEBREX [Concomitant]
     Active Substance: CELECOXIB
     Indication: MYALGIA
  20. BENADRYL [Concomitant]
     Active Substance: DIPHENHYDRAMINE HYDROCHLORIDE
     Indication: DRUG HYPERSENSITIVITY
     Dosage: 25 MG, 2X/DAY
     Route: 048
     Dates: start: 201504, end: 201509
  21. AMITRIPTYLINE [Concomitant]
     Active Substance: AMITRIPTYLINE
     Dosage: 50 MG, DAILY (TAKE 2 MORNING AND 3 AT NIGHT)
  22. ZYRTEC [Concomitant]
     Active Substance: CETIRIZINE HYDROCHLORIDE
     Dosage: UNK
     Dates: start: 201502
  23. VITAMIN B COMPLEX [Concomitant]
     Active Substance: CYANOCOBALAMIN\DEXPANTHENOL\NIACINAMIDE\PYRIDOXINE HYDROCHLORIDE\RIBOFLAVIN 5^-PHOSPHATE SODIUM\THIAMINE HYDROCHLORIDE\VITAMIN B COMPLEX
     Dosage: UNK
  24. ALPRAZOLAM. [Concomitant]
     Active Substance: ALPRAZOLAM
     Dosage: UNK
  25. ACIPHEX [Concomitant]
     Active Substance: RABEPRAZOLE SODIUM
     Dosage: UNK
  26. XANAX [Concomitant]
     Active Substance: ALPRAZOLAM
     Dosage: UNK
  27. TORSEMIDE. [Concomitant]
     Active Substance: TORSEMIDE
  28. REVATIO [Interacting]
     Active Substance: SILDENAFIL CITRATE
     Dosage: 60 MG, 3X/DAY
     Route: 048
     Dates: start: 201010
  29. LETAIRIS [Suspect]
     Active Substance: AMBRISENTAN
     Indication: PULMONARY HYPERTENSION
     Dosage: 10 MG, DAILY
     Dates: start: 201103
  30. ORENITRAM [Interacting]
     Active Substance: TREPROSTINIL
     Dosage: 17.5 MG, 1X/DAY
     Route: 048
  31. ORENITRAM [Interacting]
     Active Substance: TREPROSTINIL
     Dosage: UNK
     Dates: start: 20160209
  32. SPIRONOLACTONE. [Concomitant]
     Active Substance: SPIRONOLACTONE
     Indication: CARDIAC FAILURE
     Dosage: 100 MG, 2X/DAY (50MG TABLET BY MOUTH TWO TABLET S(100MG) TWICE A DAY)
     Route: 048
     Dates: start: 201101
  33. OMEPRAZOLE. [Concomitant]
     Active Substance: OMEPRAZOLE
     Indication: GASTROOESOPHAGEAL REFLUX DISEASE
     Dosage: 40 MG, 2X/DAY BEFORE A MEAL
     Route: 048
     Dates: start: 1998
  34. SIMVASTATIN. [Concomitant]
     Active Substance: SIMVASTATIN
     Indication: CARDIAC FAILURE
     Dosage: 10 MG, 1X/DAY  (BEFORE BED/EVERY EVENING)
     Route: 048
     Dates: start: 201010
  35. SIMVASTATIN. [Concomitant]
     Active Substance: SIMVASTATIN
     Dosage: 5 MG, DAILY (NIGHTLY)
  36. ATIVAN [Concomitant]
     Active Substance: LORAZEPAM
     Dosage: UNK
  37. REVATIO [Interacting]
     Active Substance: SILDENAFIL CITRATE
     Dosage: 60 MG, 3X/DAY
     Route: 048
     Dates: start: 201501
  38. REMODULIN [Suspect]
     Active Substance: TREPROSTINIL
     Dosage: 10 MG/ML, INFUSION PUMP AT A RATE ON 0.044 ML/HR
     Route: 058
  39. LETAIRIS [Suspect]
     Active Substance: AMBRISENTAN
     Dosage: 10 UNK, UNK
     Dates: start: 20130404
  40. DOCUSATE SODIUM. [Concomitant]
     Active Substance: DOCUSATE SODIUM
     Indication: CONSTIPATION
     Dosage: 250 MG, 2X/DAY
     Route: 048
     Dates: start: 2011
  41. CELEBREX [Concomitant]
     Active Substance: CELECOXIB
     Indication: ARTHRALGIA
     Dosage: 100 MG, 1X/DAY (1 CAPSULE BY EVERY DAY)
     Route: 048
     Dates: start: 2005
  42. OMEPRAZOLE. [Concomitant]
     Active Substance: OMEPRAZOLE
     Indication: PYLORIC STENOSIS
  43. IRON [Concomitant]
     Active Substance: IRON
     Indication: NEUROPATHY PERIPHERAL
     Dosage: 325 MG, 2X/DAY
     Route: 048
     Dates: start: 201205
  44. DEMADEX [Concomitant]
     Active Substance: TORSEMIDE
     Dosage: 60 MG, DAILY
     Route: 048
  45. PROMETHAZINE [Concomitant]
     Active Substance: PROMETHAZINE\PROMETHAZINE HYDROCHLORIDE
     Dosage: UNK
  46. TORASEMIDE [Concomitant]
     Active Substance: TORSEMIDE
     Dosage: UNK
  47. SINEMET [Concomitant]
     Active Substance: CARBIDOPA\LEVODOPA
     Dosage: UNK
  48. REVATIO [Interacting]
     Active Substance: SILDENAFIL CITRATE
     Dosage: UNK
  49. REMODULIN [Suspect]
     Active Substance: TREPROSTINIL
     Indication: PULMONARY HYPERTENSION
     Dosage: UNK(24/7 INFUSION) (0.092 ?G/KG)
     Route: 042
     Dates: start: 201406, end: 201602
  50. REMODULIN [Suspect]
     Active Substance: TREPROSTINIL
     Dosage: 92 NG, UNK, (NG/KG/MIN CONTINUOUS)
     Route: 042
     Dates: start: 20140806
  51. LETAIRIS [Suspect]
     Active Substance: AMBRISENTAN
     Dosage: 10 MG, 1X/DAY
     Route: 048
     Dates: start: 20130404
  52. LETAIRIS [Suspect]
     Active Substance: AMBRISENTAN
     Dosage: 10 MG, 1X/DAY
     Dates: start: 20130401
  53. LETAIRIS [Suspect]
     Active Substance: AMBRISENTAN
     Dosage: UNK
  54. LETAIRIS [Suspect]
     Active Substance: AMBRISENTAN
     Dosage: UNK
  55. ORENITRAM [Interacting]
     Active Substance: TREPROSTINIL
     Dosage: 2.5 MG, 3X/DAY
     Route: 048
  56. ORENITRAM [Interacting]
     Active Substance: TREPROSTINIL
     Dosage: 5 MG, 2X/DAY
     Route: 048
  57. UPTRAVI [Suspect]
     Active Substance: SELEXIPAG
     Dosage: UNK
     Dates: start: 20160224
  58. XARELTO [Concomitant]
     Active Substance: RIVAROXABAN
     Indication: RESTLESS LEGS SYNDROME
     Dosage: 10 MG, EVERY DAY BEFORE BED
     Route: 048
     Dates: start: 201504
  59. DIGOXIN. [Concomitant]
     Active Substance: DIGOXIN
     Dosage: 0.125 MG, 1X/DAY
     Route: 048
  60. CALCIUM [Concomitant]
     Active Substance: CALCIUM
     Dosage: UNK
     Dates: start: 20160224
  61. METOLAZONE. [Concomitant]
     Active Substance: METOLAZONE
     Indication: OEDEMA
     Dosage: 5 MG, 1X/DAY
     Route: 048
  62. REQUIP [Concomitant]
     Active Substance: ROPINIROLE HYDROCHLORIDE
     Dosage: 0.75 MG, 1X/DAY (EVENING)
     Route: 048
  63. STOOL SOFTENER [Concomitant]
     Active Substance: DOCUSATE CALCIUM
     Dosage: UNK
  64. COLACE [Concomitant]
     Active Substance: DOCUSATE SODIUM
     Dosage: 250 MG, 2X/DAY
     Route: 048
  65. RANITIDINE. [Concomitant]
     Active Substance: RANITIDINE
     Dosage: 300 MG, 2X/DAY
     Route: 048
  66. SYNTHROID [Concomitant]
     Active Substance: LEVOTHYROXINE SODIUM
     Dosage: 100 UG, 1X/DAY
     Route: 048
  67. LETAIRIS [Suspect]
     Active Substance: AMBRISENTAN
     Dosage: 10 MG, 1X/DAY (10 MG Q.A.M)
     Route: 048
  68. ORENITRAM [Interacting]
     Active Substance: TREPROSTINIL
     Dosage: 2.5 MG, 3X/DAY
     Route: 048
     Dates: start: 20151229, end: 20160309
  69. ORENITRAM [Interacting]
     Active Substance: TREPROSTINIL
     Dosage: UNK
     Dates: start: 20160116
  70. POTASSIUM [Concomitant]
     Active Substance: POTASSIUM
     Indication: RENAL DISORDER
     Dosage: 20 MEQ, 3X/DAY
     Route: 048
     Dates: start: 2010
  71. POTASSIUM [Concomitant]
     Active Substance: POTASSIUM
     Indication: CARDIAC DISORDER
  72. ROPINIROLE. [Concomitant]
     Active Substance: ROPINIROLE
     Indication: RESTLESS LEGS SYNDROME
     Dosage: 0.25 MG, UNK (BEFORE BED)
     Route: 048
     Dates: start: 201505
  73. DIGOXIN. [Concomitant]
     Active Substance: DIGOXIN
     Indication: CARDIAC FAILURE
     Dosage: 10 MG, 1X/DAY (ONCE IN THE EVENING)
     Route: 048
     Dates: start: 201010
  74. INVANZ [Concomitant]
     Active Substance: ERTAPENEM SODIUM
     Dosage: 1 G, 1X/DAY
  75. FERGON [Concomitant]
     Active Substance: FERROUS GLUCONATE
     Dosage: 225 MG, 2X/DAY
  76. PRILOSEC [Concomitant]
     Active Substance: OMEPRAZOLE MAGNESIUM
     Dosage: 40 MG, 2X/DAY
     Route: 048
  77. ASCORBIC ACID. [Concomitant]
     Active Substance: ASCORBIC ACID
     Indication: BLOOD IRON
     Dosage: 500 MG, 1X/DAY
     Route: 048
  78. REMODULIN [Suspect]
     Active Substance: TREPROSTINIL
     Dosage: 0.022 ?G/KG, UNK
     Route: 058
     Dates: start: 201311
  79. LETAIRIS [Suspect]
     Active Substance: AMBRISENTAN
     Dosage: 10 MG, DAILY
     Dates: start: 20130404
  80. LETAIRIS [Suspect]
     Active Substance: AMBRISENTAN
     Dosage: 10 MG, 1X/DAY (QD)
     Route: 048
     Dates: start: 20110208
  81. ORENITRAM [Interacting]
     Active Substance: TREPROSTINIL
     Dosage: 7.5 MG, 3X/DAY
     Route: 048
  82. ORENITRAM [Interacting]
     Active Substance: TREPROSTINIL
     Dosage: 5 MG, 3X/DAY
     Dates: start: 20160307
  83. UPTRAVI [Suspect]
     Active Substance: SELEXIPAG
     Dosage: 200 UNK, 2X/DAY
     Dates: start: 20160307
  84. OMEPRAZOLE. [Concomitant]
     Active Substance: OMEPRAZOLE
     Indication: GASTRIC ULCER
  85. XARELTO [Concomitant]
     Active Substance: RIVAROXABAN
     Indication: CARDIAC FAILURE
  86. ONDANSETRON [Concomitant]
     Active Substance: ONDANSETRON
     Dosage: UNK
     Dates: start: 201506
  87. TRAMADOL. [Concomitant]
     Active Substance: TRAMADOL
     Dosage: UNK
  88. ZOCOR [Concomitant]
     Active Substance: SIMVASTATIN
     Dosage: 5 MG, 1X/DAY
     Route: 048
  89. VITAMIN B12 [Concomitant]
     Active Substance: CYANOCOBALAMIN
  90. REMODULIN [Suspect]
     Active Substance: TREPROSTINIL
     Indication: PULMONARY ARTERIAL HYPERTENSION
     Dosage: 92 MG, UNK, (PER HOUR)
     Dates: start: 201311
  91. REMODULIN [Suspect]
     Active Substance: TREPROSTINIL
     Dosage: 0.022 UG/KG, UNK
     Route: 042
     Dates: start: 20140806
  92. UPTRAVI [Suspect]
     Active Substance: SELEXIPAG
     Dosage: 1600 UNK, 2X/DAY
  93. SPIRONOLACTONE. [Concomitant]
     Active Substance: SPIRONOLACTONE
     Dosage: 100 MG, 1X/DAY (50MG TAKE 2 TABLETS ONCE DAILY )
     Route: 048
  94. IRON [Concomitant]
     Active Substance: IRON
     Indication: RESTLESS LEGS SYNDROME
     Dosage: 325 MG, 2X/DAY
     Route: 048
     Dates: start: 201505
  95. VITAMIN C [Concomitant]
     Active Substance: ASCORBIC ACID
     Indication: BLOOD IRON
     Dosage: 500 MG, 1X/DAY
     Route: 048
     Dates: start: 201505
  96. MORPHINE HYDROCHLORIDE [Concomitant]
     Active Substance: MORPHINE HYDROCHLORIDE
     Dosage: UNK
  97. OXYGEN. [Concomitant]
     Active Substance: OXYGEN
     Dosage: UNK
  98. FERROUS GLUCONATE [Concomitant]
     Active Substance: FERROUS GLUCONATE
     Dosage: UNK
  99. KLOR-CON [Concomitant]
     Active Substance: POTASSIUM CHLORIDE
     Dosage: 20 MEQ, 3X/DAY
     Route: 048
  100. FLUTICASONE [Concomitant]
     Active Substance: FLUTICASONE\FLUTICASONE PROPIONATE
     Dosage: UNK, 2X/DAY
     Route: 061
  101. ALDACTONE [Concomitant]
     Active Substance: SPIRONOLACTONE
     Route: 048

REACTIONS (74)
  - Pulmonary oedema [Not Recovered/Not Resolved]
  - Acute myocardial infarction [Unknown]
  - Anaemia [Unknown]
  - Device related infection [Unknown]
  - Staphylococcal infection [Unknown]
  - Pain [Recovered/Resolved]
  - Asthenia [Unknown]
  - Palpitations [Unknown]
  - Renal failure [Not Recovered/Not Resolved]
  - Dyspnoea [Unknown]
  - Gastric ulcer [Not Recovered/Not Resolved]
  - Cardiac failure congestive [Unknown]
  - Cellulitis [Unknown]
  - Myocardial infarction [Recovered/Resolved]
  - Clostridium difficile infection [Recovered/Resolved]
  - Syncope [Recovered/Resolved]
  - Headache [Not Recovered/Not Resolved]
  - Influenza like illness [Recovered/Resolved]
  - Peripheral swelling [Recovered/Resolved]
  - Ear haemorrhage [Unknown]
  - Chest pain [Unknown]
  - Localised oedema [Unknown]
  - Fatigue [Recovered/Resolved]
  - Dizziness [Recovered/Resolved]
  - Device related sepsis [Recovered/Resolved]
  - Injection site pain [Unknown]
  - Abdominal pain upper [Not Recovered/Not Resolved]
  - Sepsis [Unknown]
  - Pulmonary arterial hypertension [Unknown]
  - Upper respiratory tract infection [Unknown]
  - Pain in jaw [Recovered/Resolved]
  - Muscle spasms [Not Recovered/Not Resolved]
  - Otorrhoea [Unknown]
  - Fluid retention [Recovered/Resolved]
  - Urinary incontinence [Unknown]
  - Pulmonary hypertension [Unknown]
  - Catheter site cellulitis [Not Recovered/Not Resolved]
  - Wound [Not Recovered/Not Resolved]
  - Catheter site scab [Unknown]
  - Laboratory test abnormal [Unknown]
  - Device breakage [Unknown]
  - Diarrhoea [Recovered/Resolved]
  - Pericardial effusion [Unknown]
  - Acute respiratory failure [Unknown]
  - Ascites [Unknown]
  - Post procedural haemorrhage [Unknown]
  - Vomiting [Recovered/Resolved]
  - Fluid overload [Unknown]
  - Flushing [Recovered/Resolved]
  - Drug interaction [Unknown]
  - Blindness transient [Recovered/Resolved]
  - Catheter site swelling [Recovered/Resolved]
  - Multiple organ dysfunction syndrome [Unknown]
  - Hypotension [Unknown]
  - Pyrexia [Unknown]
  - Pleural effusion [Unknown]
  - Nausea [Not Recovered/Not Resolved]
  - Device dislocation [Unknown]
  - Skin exfoliation [Not Recovered/Not Resolved]
  - Drug dose omission [Unknown]
  - Condition aggravated [Unknown]
  - Device leakage [Unknown]
  - Device occlusion [Recovered/Resolved]
  - Abdominal pain [Not Recovered/Not Resolved]
  - Drug intolerance [Unknown]
  - Feeling abnormal [Recovered/Resolved]
  - Malaise [Recovering/Resolving]
  - Productive cough [Unknown]
  - Nodule [Unknown]
  - Chills [Unknown]
  - Gait disturbance [Recovered/Resolved]
  - Chest discomfort [Unknown]
  - Bladder disorder [Unknown]
  - Product use issue [Unknown]

NARRATIVE: CASE EVENT DATE: 201010
